FAERS Safety Report 9565643 (Version 2)
Quarter: 2013Q4

REPORT INFORMATION
  Report Type: Spontaneous
  Country: US (occurrence: US)
  Receive Date: 20130930
  Receipt Date: 20131022
  Transmission Date: 20140711
  Serious: No
  Sender: FDA-Public Use
  Company Number: US-TEVA-435002USA

PATIENT
  Age: 47 Year
  Sex: Female
  Weight: 60.38 kg

DRUGS (1)
  1. PARAGARD 380A [Suspect]
     Indication: CONTRACEPTION
     Route: 015
     Dates: start: 20130809, end: 20130919

REACTIONS (11)
  - Uterine pain [Recovered/Resolved]
  - Metrorrhagia [Recovered/Resolved]
  - Uterine spasm [Recovered/Resolved]
  - Pain [Unknown]
  - Nausea [Recovered/Resolved]
  - Fatigue [Recovered/Resolved]
  - Chills [Unknown]
  - Vaginal discharge [Unknown]
  - Vaginal odour [Unknown]
  - Feeling hot [Unknown]
  - Malaise [Recovered/Resolved]
